FAERS Safety Report 6232263-4 (Version None)
Quarter: 2009Q2

REPORT INFORMATION
  Report Type: 
  Country: None (occurrence: None)
  Receive Date: 20090616
  Receipt Date: 20090616
  Transmission Date: 20091009
  Serious: Yes (Other)
  Sender: FDA-Public Use
  Company Number: None

PATIENT
  Sex: Female
  Weight: 56.246 kg

DRUGS (9)
  1. LAMOTRIGINE [Suspect]
     Indication: BIPOLAR DISORDER
     Dosage: 4/17/09 25MG QD X 2WKS ORAL; 5/1/09 INCREASE TO 50MG
     Route: 048
     Dates: start: 20090417
  2. LAMOTRIGINE [Suspect]
     Indication: POST-TRAUMATIC STRESS DISORDER
     Dosage: 4/17/09 25MG QD X 2WKS ORAL; 5/1/09 INCREASE TO 50MG
     Route: 048
     Dates: start: 20090417
  3. LAMOTRIGINE [Suspect]
     Indication: BIPOLAR DISORDER
     Dosage: 4/17/09 25MG QD X 2WKS ORAL; 5/1/09 INCREASE TO 50MG
     Route: 048
     Dates: start: 20090501
  4. LAMOTRIGINE [Suspect]
     Indication: POST-TRAUMATIC STRESS DISORDER
     Dosage: 4/17/09 25MG QD X 2WKS ORAL; 5/1/09 INCREASE TO 50MG
     Route: 048
     Dates: start: 20090501
  5. LITHOBID [Concomitant]
  6. OMEPRAZOLE [Concomitant]
  7. CALCIUM [Concomitant]
  8. PRAZSOIN HCL [Concomitant]
  9. VITAMIN E [Concomitant]

REACTIONS (4)
  - COUGH [None]
  - OROPHARYNGEAL PAIN [None]
  - PYREXIA [None]
  - RASH [None]
